FAERS Safety Report 5438881-5 (Version None)
Quarter: 2007Q3

REPORT INFORMATION
  Report Type: 
  Country: None (occurrence: None)
  Receive Date: 20070831
  Receipt Date: 20070824
  Transmission Date: 20080115
  Serious: Yes (Other)
  Sender: FDA-Public Use
  Company Number: JP-JNJFOC-20070800977

PATIENT
  Age: 73 Year
  Sex: Male

DRUGS (6)
  1. RISPERIDONE [Suspect]
     Indication: DRUG USE FOR UNKNOWN INDICATION
     Route: 048
  2. ANTIHYPERTENSIVES [Concomitant]
  3. DEPAKENE [Concomitant]
  4. GRAMALIL [Concomitant]
  5. LISINOPRIL [Concomitant]
  6. NIVADIL [Concomitant]

REACTIONS (4)
  - ACCIDENTAL EXPOSURE [None]
  - BLOOD PRESSURE DECREASED [None]
  - HYPOXIA [None]
  - RESPIRATORY FAILURE [None]
